FAERS Safety Report 20204125 (Version 1)
Quarter: 2021Q4

REPORT INFORMATION
  Report Type: Report from Study
  Country: US (occurrence: US)
  Receive Date: 20211220
  Receipt Date: 20211220
  Transmission Date: 20220303
  Serious: Yes (Other)
  Sender: FDA-Public Use
  Company Number: US-ABBVIE-21K-163-4202027-00

PATIENT
  Sex: Female

DRUGS (2)
  1. HUMIRA [Suspect]
     Active Substance: ADALIMUMAB
     Indication: Colitis ulcerative
     Dosage: DAY 1
     Route: 058
     Dates: start: 20211117, end: 20211117
  2. HUMIRA [Suspect]
     Active Substance: ADALIMUMAB
     Dosage: DAY 15
     Route: 058
     Dates: start: 20211201, end: 20211201

REACTIONS (14)
  - Gastric ulcer haemorrhage [Recovered/Resolved]
  - Pyrexia [Recovered/Resolved]
  - Pain [Unknown]
  - Fatigue [Unknown]
  - Pain in jaw [Unknown]
  - Chills [Unknown]
  - Hyperhidrosis [Unknown]
  - Diarrhoea [Not Recovered/Not Resolved]
  - Abdominal pain [Not Recovered/Not Resolved]
  - Proctalgia [Not Recovered/Not Resolved]
  - Muscle spasms [Not Recovered/Not Resolved]
  - Haematochezia [Not Recovered/Not Resolved]
  - Mucous stools [Not Recovered/Not Resolved]
  - Defaecation urgency [Not Recovered/Not Resolved]

NARRATIVE: CASE EVENT DATE: 20210101
